FAERS Safety Report 8777668 (Version 2)
Quarter: 2012Q4

REPORT INFORMATION
  Report Type: Report from Study
  Country: DE (occurrence: DE)
  Receive Date: 20120911
  Receipt Date: 20120920
  Transmission Date: 20130627
  Serious: Yes (Other)
  Sender: FDA-Public Use
  Company Number: DE-JNJFOC-20120902740

PATIENT
  Age: 52 Year
  Sex: Female

DRUGS (4)
  1. REMICADE [Suspect]
     Indication: RHEUMATOID ARTHRITIS
     Dosage: 7 infusions; cumulative dose, ^2400 mg^
     Route: 042
     Dates: start: 20111013
  2. REMICADE [Suspect]
     Indication: RHEUMATOID ARTHRITIS
     Route: 042
     Dates: start: 201006, end: 20110428
  3. ARAVA [Concomitant]
  4. PREDNISOLONE [Concomitant]

REACTIONS (2)
  - Postoperative wound complication [Recovered/Resolved]
  - Tarsal tunnel syndrome [Recovered/Resolved]
